FAERS Safety Report 9230281 (Version 1)
Quarter: 2013Q1

REPORT INFORMATION
  Report Type: Spontaneous
  Country: US (occurrence: None)
  Receive Date: 20121031
  Receipt Date: 20121031
  Transmission Date: 20140127
  Serious: No
  Sender: FDA-Public Use
  Company Number: PHEH2012USD11371

PATIENT
  Age: 54 Year
  Sex: Female
  Weight: 101.1 kg

DRUGS (9)
  1. GILENYA (FTY) CAPSULE, 0.5MG [Suspect]
     Indication: MULTIPLE SCLEROSIS
     Route: 048
     Dates: start: 20120530
  2. NEURONTIN (GABAPENTIN) [Concomitant]
  3. MAGNESIUM ( MAGNESIUM) [Concomitant]
  4. BACLOFEN ( BACLOFEN) [Concomitant]
  5. BYSTOLIC ( NEBIVOLOL HYDROCHLORIDE) [Concomitant]
  6. FAMPRIDINE ( FAMPRIDINE) [Concomitant]
  7. MILNACIPRAN HYDROCHLORIDE ( MILNACIPRAN HYDROCHLORIDE) [Concomitant]
  8. VITAMIN D3 ( COLECALCIFEROL) [Concomitant]
  9. PERCOCET ( OXYCODONE HYDROCHLORIDE, PARACETAMOL) [Concomitant]

REACTIONS (2)
  - Heart rate increased [None]
  - Fatigue [None]
